FAERS Safety Report 5280302-X (Version None)
Quarter: 2007Q1

REPORT INFORMATION
  Report Type: 
  Country: None (occurrence: None)
  Receive Date: 20070329
  Receipt Date: 20070326
  Transmission Date: 20070707
  Serious: Yes (Life-Threatening, Hospitalization)
  Sender: FDA-Public Use
  Company Number: JP-JPN-A200701043

PATIENT
  Age: 1 Day

DRUGS (6)
  1. ZOVIRAX [Suspect]
     Indication: HERPES SIMPLEX
     Dates: start: 20070209, end: 20070213
  2. UTEMERIN [Concomitant]
     Dates: start: 20061231, end: 20070304
  3. CEFAMEZIN [Concomitant]
     Dates: start: 20070205, end: 20070208
  4. PANSPORIN [Concomitant]
     Dosage: 3G PER DAY
     Dates: start: 20070218, end: 20070221
  5. VICCLOX [Concomitant]
     Dosage: 800MG PER DAY
     Dates: start: 20070218, end: 20070220
  6. XYLOCAINE [Concomitant]
     Dates: start: 20070305, end: 20070305

REACTIONS (7)
  - ADRENAL INSUFFICIENCY NEONATAL [None]
  - DEHYDRATION [None]
  - DRUG EXPOSURE DURING PREGNANCY [None]
  - HYPERKALAEMIA [None]
  - HYPOCALCAEMIA [None]
  - NEONATAL ASPHYXIA [None]
  - PREMATURE BABY [None]
